FAERS Safety Report 15789823 (Version 1)
Quarter: 2019Q1

REPORT INFORMATION
  Report Type: Spontaneous
  Country: ES (occurrence: ES)
  Receive Date: 20190104
  Receipt Date: 20190104
  Transmission Date: 20190417
  Serious: Yes (Hospitalization)
  Sender: FDA-Public Use
  Company Number: ES-MYLANLABS-2017M1079807

PATIENT
  Age: 46 Year
  Sex: Female

DRUGS (2)
  1. ESOMEPRAZOLE. [Suspect]
     Active Substance: ESOMEPRAZOLE MAGNESIUM
     Indication: GASTROOESOPHAGEAL REFLUX DISEASE
     Dosage: 40 MG CADA 24 HORAS
     Route: 048
     Dates: start: 20170822
  2. OMEPRAZOLE. [Suspect]
     Active Substance: OMEPRAZOLE
     Indication: GASTROOESOPHAGEAL REFLUX DISEASE
     Dosage: 40 MG/12H
     Route: 048
     Dates: start: 20170817, end: 20171021

REACTIONS (4)
  - Pancytopenia [Recovered/Resolved]
  - Inappropriate schedule of product administration [Unknown]
  - Overdose [Unknown]
  - Vitamin B12 decreased [Recovered/Resolved]

NARRATIVE: CASE EVENT DATE: 20170817
